FAERS Safety Report 8157397-9 (Version None)
Quarter: 2012Q1

REPORT INFORMATION
  Report Type: 
  Country: None (occurrence: None)
  Receive Date: 20120103
  Receipt Date: 20111028
  Transmission Date: 20120608
  Serious: No
  Sender: FDA-Public Use
  Company Number: AE-2011-002017

PATIENT
  Age: 60 Year
  Sex: Male

DRUGS (4)
  1. PEGASYS [Concomitant]
  2. RIBAVIRIN [Concomitant]
  3. SUBOXONE (BUPRENORPHINE) [Concomitant]
  4. INCIVEK [Suspect]
     Dosage: ORAL
     Route: 048
     Dates: start: 20110821

REACTIONS (5)
  - INFLUENZA LIKE ILLNESS [None]
  - PAIN OF SKIN [None]
  - VOMITING [None]
  - HEADACHE [None]
  - NAUSEA [None]
